FAERS Safety Report 8740324 (Version 2)
Quarter: 2013Q4

REPORT INFORMATION
  Report Type: Spontaneous
  Country: US (occurrence: US)
  Receive Date: 20120823
  Receipt Date: 20131101
  Transmission Date: 20140711
  Serious: No
  Sender: FDA-Public Use
  Company Number: US-009507513-1208USA003246

PATIENT
  Age: 40 Year
  Sex: Female

DRUGS (11)
  1. PEGINTRON [Suspect]
     Indication: HEPATITIS C
     Dosage: 150 MICROGRAM, QW
     Dates: start: 20120514
  2. PRILOSEC [Concomitant]
  3. SOMA [Concomitant]
  4. FLONASE [Concomitant]
  5. PROVENTIL [Concomitant]
  6. VICODIN [Concomitant]
  7. ABILIFY [Concomitant]
  8. SEROQUEL [Concomitant]
  9. XANAX [Concomitant]
  10. SAVELLA [Concomitant]
  11. OXYCODONE [Concomitant]

REACTIONS (3)
  - Injection site rash [Recovering/Resolving]
  - Fatigue [Recovering/Resolving]
  - Drug dose omission [Unknown]
